FAERS Safety Report 5817459-5 (Version None)
Quarter: 2008Q3

REPORT INFORMATION
  Report Type: 
  Country: None (occurrence: None)
  Receive Date: 20080715
  Receipt Date: 20080703
  Transmission Date: 20090109
  Serious: Yes (Hospitalization)
  Sender: FDA-Public Use
  Company Number: 2004JP002020

PATIENT
  Age: 38 Year
  Sex: Male
  Weight: 49 kg

DRUGS (40)
  1. PROGRAF [Suspect]
     Indication: LUNG TRANSPLANT
     Dosage: SEE IMAGE
     Route: 048
     Dates: start: 20040213, end: 20040305
  2. PROGRAF [Suspect]
     Indication: LUNG TRANSPLANT
     Dosage: SEE IMAGE
     Route: 048
     Dates: start: 20040306, end: 20040506
  3. PROGRAF [Suspect]
     Indication: LUNG TRANSPLANT
     Dosage: SEE IMAGE
     Route: 048
     Dates: start: 20040507, end: 20040804
  4. PROGRAF [Suspect]
     Indication: LUNG TRANSPLANT
     Dosage: SEE IMAGE
     Route: 048
     Dates: start: 20040805, end: 20050127
  5. PROGRAF [Suspect]
     Indication: LUNG TRANSPLANT
     Dosage: SEE IMAGE
     Route: 048
     Dates: start: 20050128, end: 20050714
  6. PROGRAF [Suspect]
     Indication: LUNG TRANSPLANT
     Dosage: SEE IMAGE
     Route: 048
     Dates: start: 20050715, end: 20060202
  7. PROGRAF [Suspect]
     Indication: LUNG TRANSPLANT
     Dosage: SEE IMAGE
     Route: 048
     Dates: start: 20050203
  8. PROGRAF [Suspect]
     Indication: LUNG TRANSPLANT
     Dosage: SEE IMAGE
     Route: 048
     Dates: start: 20060810
  9. PROGRAF [Suspect]
     Indication: LUNG TRANSPLANT
     Dosage: SEE IMAGE
     Route: 048
     Dates: start: 20070205
  10. PROGRAF [Suspect]
     Indication: LUNG TRANSPLANT
     Dosage: 1 MG, /D, IV NOS
     Route: 042
     Dates: start: 20040206, end: 20040213
  11. IMURAN [Suspect]
     Indication: LUNG TRANSPLANT
     Dosage: 2 MG/KG, /D, ORAL, 50 MG, /D, ORAL
     Route: 048
     Dates: start: 20040205, end: 20040625
  12. IMURAN [Suspect]
     Indication: LUNG TRANSPLANT
     Dosage: 2 MG/KG, /D, ORAL, 50 MG, /D, ORAL
     Route: 048
     Dates: start: 20050827, end: 20051027
  13. PREDONINE(PREDNISOLONE) [Suspect]
     Indication: LUNG TRANSPLANT
     Dosage: 0.5 MG/KG, /D, ORAL, 10 MG, /D, ORAL
     Route: 049
     Dates: start: 20040217
  14. CLAFORAN [Suspect]
     Indication: PNEUMONIA
     Dosage: 1 G, TID
     Dates: start: 20061130, end: 20061204
  15. PASIL(PAZUFLOXACIN) [Suspect]
     Indication: PNEUMONIA
     Dosage: 500 MG, BID
     Dates: start: 20061130, end: 20061204
  16. VANCOMYCIN [Suspect]
     Dosage: IV NOS, IV NOS, 2 G, /D
     Dates: start: 20040206, end: 20040208
  17. VANCOMYCIN [Suspect]
     Dosage: IV NOS, IV NOS, 2 G, /D
     Dates: start: 20040218, end: 20040223
  18. VANCOMYCIN [Suspect]
     Dosage: IV NOS, IV NOS, 2 G, /D
     Dates: start: 20040308, end: 20040323
  19. VANCOMYCIN [Suspect]
     Dosage: IV NOS, IV NOS, 2 G, /D
     Dates: start: 20061228
  20. BISOLVON (BROMHEXINE HYDROCHLORIDE) [Concomitant]
  21. ALOTEC (ORCIPRENALINE SULFATE) [Concomitant]
  22. FUNGIZONE [Concomitant]
  23. SULFAMETHOXAZOLE AND TRIMETHOPRIM [Concomitant]
  24. GANCICLOVIR [Concomitant]
  25. ALFAROL (ALFACALCIDOL) [Concomitant]
  26. ITRACONAZOLE [Concomitant]
  27. LASIX [Concomitant]
  28. LANSOPRAZOLE [Concomitant]
  29. ZADITEN [Concomitant]
  30. ZANTAC 150 [Concomitant]
  31. AMOBAN (ZOPICLONE) [Concomitant]
  32. ASPARA-CA (ASPARTATE CALCIUM) [Concomitant]
  33. BENET (RISEDRONATE SODIUM) [Concomitant]
  34. ZOVIRAX [Concomitant]
  35. HOKUNALIN (TULOBUTEROL HYDROCHLORIDE) [Concomitant]
  36. SPIRIVA [Concomitant]
  37. MUCOSTA (REBAMIPIDE) [Concomitant]
  38. SEREVENT [Concomitant]
  39. BIOFERMIN R (STREPTOCOCCUS FAECALIS) [Concomitant]
  40. SOLDEM 3A (SODIUM LACTATE, POTASSIUM CHLORIDE, CARBOHYDRATES NOS, SODI [Concomitant]

REACTIONS (14)
  - BLOOD ALBUMIN DECREASED [None]
  - BLOOD LACTATE DEHYDROGENASE INCREASED [None]
  - BRONCHOPULMONARY ASPERGILLOSIS [None]
  - DIARRHOEA [None]
  - EPSTEIN-BARR VIRUS ASSOCIATED LYMPHOPROLIFERATIVE DISORDER [None]
  - LUNG TRANSPLANT [None]
  - NO THERAPEUTIC RESPONSE [None]
  - OSTEOMYELITIS [None]
  - PNEUMONIA [None]
  - PYREXIA [None]
  - RESPIRATORY FAILURE [None]
  - STERNAL FRACTURE [None]
  - TRANSPLANT REJECTION [None]
  - VOMITING [None]
